FAERS Safety Report 4576284-6 (Version None)
Quarter: 2005Q1

REPORT INFORMATION
  Report Type: 
  Country: None (occurrence: None)
  Receive Date: 20050207
  Receipt Date: 20050126
  Transmission Date: 20050727
  Serious: Yes (Hospitalization)
  Sender: FDA-Public Use
  Company Number: 2005013112

PATIENT
  Age: 27 Year
  Sex: Female

DRUGS (12)
  1. HALCION [Suspect]
     Indication: ILL-DEFINED DISORDER
     Dosage: 0.5 MG(0.5 MG , 1 D), ORAL
     Route: 048
  2. VEGETAMIN [Suspect]
     Indication: ILL-DEFINED DISORDER
     Dosage: (1 IN 1 D), ORAL
     Route: 048
  3. CARBAMAZEPINE [Concomitant]
  4. PAROXETINE HYDROCHLORIDE [Concomitant]
  5. BIPERIDEN HYDROCHLORIDE TAB [Concomitant]
  6. LEVOMEPROMAZINE               (LEVOMEPROMAZINE) [Concomitant]
  7. QUETIAPINE FUMARATE [Concomitant]
  8. BROTIZOLAM             (BROTIZOLAM) [Concomitant]
  9. FLUNITRAZEPAM               (FLUNITRAZEPAM) [Concomitant]
  10. PROMETHAZINE HCL [Concomitant]
  11. BROMAZEPAM            (BROMAZEPAM) [Concomitant]
  12. CLOXAZOLAM            (CLOXAZOLAM) [Concomitant]

REACTIONS (9)
  - BLOOD AMYLASE INCREASED [None]
  - BLOOD CREATINE PHOSPHOKINASE INCREASED [None]
  - DIALYSIS [None]
  - INTENTIONAL MISUSE [None]
  - LIPASE INCREASED [None]
  - LOSS OF CONSCIOUSNESS [None]
  - PNEUMONIA ASPIRATION [None]
  - RENAL FAILURE ACUTE [None]
  - SUICIDE ATTEMPT [None]
